FAERS Safety Report 9947381 (Version 1)
Quarter: 2014Q1

REPORT INFORMATION
  Report Type: Report from Study
  Country: US (occurrence: US)
  Receive Date: 20140303
  Receipt Date: 20140303
  Transmission Date: 20141002
  Serious: No
  Sender: FDA-Public Use
  Company Number: US-ABBVIE-13P-163-1064425-00

PATIENT
  Age: 60 Year
  Sex: Female

DRUGS (4)
  1. HUMIRA [Suspect]
     Indication: PSORIASIS
     Dates: start: 201210
  2. NEXIUM [Concomitant]
     Indication: GASTROOESOPHAGEAL REFLUX DISEASE
  3. BENICAR [Concomitant]
     Indication: HYPERTENSION
     Dosage: 40/25 MG
  4. GARLIC [Concomitant]

REACTIONS (4)
  - Incorrect product storage [Unknown]
  - Injection site pain [Unknown]
  - Rhinorrhoea [Recovering/Resolving]
  - Feeling abnormal [Recovering/Resolving]
